FAERS Safety Report 4359199-8 (Version None)
Quarter: 2004Q2

REPORT INFORMATION
  Report Type: 
  Country: None (occurrence: None)
  Receive Date: 20040517
  Receipt Date: 20040517
  Transmission Date: 20050107
  Serious: Yes (Hospitalization, Other)
  Sender: FDA-Public Use
  Company Number: None

PATIENT
  Age: 57 Year
  Sex: Male
  Weight: 86.1834 kg

DRUGS (2)
  1. CEFUROXIME [Suspect]
     Indication: PROSTATITIS
     Dosage: 250MG DAILY
  2. DIOVAN [Concomitant]

REACTIONS (5)
  - CHEST DISCOMFORT [None]
  - COLD SWEAT [None]
  - DISORIENTATION [None]
  - HYPERHIDROSIS [None]
  - VOMITING [None]
